FAERS Safety Report 7866307-0 (Version None)
Quarter: 2011Q4

REPORT INFORMATION
  Report Type: 
  Country: None (occurrence: None)
  Receive Date: 20111028
  Receipt Date: 20110527
  Transmission Date: 20120403
  Serious: No
  Sender: FDA-Public Use
  Company Number: US-GLAXOSMITHKLINE-A0929514A

PATIENT
  Age: 67 Year
  Sex: Female

DRUGS (18)
  1. GABAPENTIN [Concomitant]
  2. LECITHIN [Concomitant]
  3. FISH OIL [Concomitant]
  4. SINEMET [Concomitant]
  5. MELOXICAM [Concomitant]
  6. VENTOLIN HFA [Concomitant]
  7. FOSAMAX [Concomitant]
  8. LEVOTHYROXINE SODIUM [Concomitant]
  9. FOLIC ACID [Concomitant]
  10. ATENOLOL [Concomitant]
  11. FLONASE [Concomitant]
  12. OSTEO BI-FLEX [Concomitant]
  13. MODAFINIL [Concomitant]
  14. ADVAIR DISKUS 100/50 [Suspect]
     Indication: ASTHMA
     Dosage: 1PUFF TWICE PER DAY
     Route: 055
     Dates: start: 20100101, end: 20110501
  15. CALCIUM CARBONATE [Concomitant]
  16. EYE MEDICATION [Concomitant]
  17. MELATONIN [Concomitant]
  18. METHOTREXATE [Concomitant]

REACTIONS (6)
  - CANDIDIASIS [None]
  - PALLOR [None]
  - CHEILITIS [None]
  - DYSKINESIA [None]
  - DYSPHONIA [None]
  - VOCAL CORD DISORDER [None]
